FAERS Safety Report 6085891-3 (Version None)
Quarter: 2009Q1

REPORT INFORMATION
  Report Type: 
  Country: None (occurrence: None)
  Receive Date: 20090220
  Receipt Date: 20090210
  Transmission Date: 20090719
  Serious: Yes (Other)
  Sender: FDA-Public Use
  Company Number: FR-WYE-H07738909

PATIENT
  Sex: Female

DRUGS (4)
  1. INIPOMP [Suspect]
     Indication: ABDOMINAL PAIN UPPER
     Route: 048
     Dates: start: 20081003, end: 20081010
  2. DIFFU K [Concomitant]
     Dosage: UNKNOWN
  3. PREDNISONE [Concomitant]
     Dosage: UNKNOWN
  4. PLAQUENIL [Suspect]
     Route: 048
     Dates: start: 20080923, end: 20081010

REACTIONS (3)
  - DERMATITIS BULLOUS [None]
  - PRURITUS [None]
  - URTICARIA [None]
